FAERS Safety Report 7069572-5 (Version None)
Quarter: 2010Q4

REPORT INFORMATION
  Report Type: 
  Country: None (occurrence: None)
  Receive Date: 20101028
  Receipt Date: 20100212
  Transmission Date: 20110411
  Serious: Yes (Other)
  Sender: FDA-Public Use
  Company Number: US-WYE-H13503910

PATIENT
  Age: 41 Year
  Sex: Female

DRUGS (5)
  1. PROTONIX [Suspect]
     Indication: ABDOMINAL DISCOMFORT
     Route: 048
  2. ALBUTEROL [Concomitant]
     Indication: ASTHMA
     Dosage: 1-2 PUFFS EVERY 4 HOURS (90 MCG)
     Route: 055
  3. HYDROXYCHLOROQUINE SULFATE [Concomitant]
     Indication: SYSTEMIC LUPUS ERYTHEMATOSUS
  4. ROLAIDS [Suspect]
     Indication: ABDOMINAL DISCOMFORT
     Dosage: 1-2 TABS DAILY
     Route: 048
  5. RELAFEN [Concomitant]
     Indication: SYSTEMIC LUPUS ERYTHEMATOSUS
     Dosage: 1 TABLET 2-3 TIMES DAILY (500 MG)

REACTIONS (1)
  - DEPRESSION [None]
